FAERS Safety Report 5307935-6 (Version None)
Quarter: 2007Q1

REPORT INFORMATION
  Report Type: 
  Country: None (occurrence: None)
  Receive Date: 20070201
  Receipt Date: 20061227
  Transmission Date: 20070707
  Serious: No
  Sender: FDA-Public Use
  Company Number: 2006PV027444

PATIENT
  Age: 59 Year
  Sex: Male
  Weight: 156.0374 kg

DRUGS (11)
  1. BYETTA [Suspect]
     Indication: DIABETES MELLITUS NON-INSULIN-DEPENDENT
     Dosage: 5 MCG;BID;SC
     Route: 058
     Dates: start: 20061224
  2. AVANDIA [Concomitant]
  3. NOVOLOG [Concomitant]
  4. LANTUS [Concomitant]
  5. ASPIRIN [Concomitant]
  6. IRON SUPPLEMENT [Concomitant]
  7. METOPROLOL XR [Concomitant]
  8. METOLAZONE [Concomitant]
  9. KLOR-CON [Concomitant]
  10. DULCOLAX [Concomitant]
  11. AMBIEN [Concomitant]

REACTIONS (2)
  - CHANGE OF BOWEL HABIT [None]
  - HAEMATOCHEZIA [None]
